FAERS Safety Report 8364032-3 (Version None)
Quarter: 2012Q2

REPORT INFORMATION
  Report Type: 
  Country: None (occurrence: None)
  Receive Date: 20120516
  Receipt Date: 20120217
  Transmission Date: 20120825
  Serious: No
  Sender: FDA-Public Use
  Company Number: US-ALEXION-A201200307

PATIENT

DRUGS (14)
  1. OMEPRAZOLE [Concomitant]
     Dosage: 20 MG, QD
     Route: 048
  2. PREMARIN [Concomitant]
     Dosage: 0.625 MG, QD
     Route: 048
  3. CALCIUM CARBONATE [Concomitant]
     Dosage: 1250 MG, TID
     Route: 048
  4. ZANAFLEX [Concomitant]
     Dosage: 4 MG, TID
     Route: 048
  5. MIRALAX [Concomitant]
     Dosage: UNK
  6. REGLAN [Concomitant]
     Dosage: 5 MG, BEFORE MEALS + AT BEDTIME
     Route: 048
  7. COREG [Concomitant]
     Dosage: 6.25 MG, BID
     Route: 048
  8. SOLIRIS [Suspect]
     Indication: HAEMOLYTIC URAEMIC SYNDROME
     Dosage: 900 MG, UNK
     Route: 042
     Dates: start: 20120131, end: 20120209
  9. CYMBALTA [Concomitant]
     Dosage: 60 MG, QD
     Route: 048
  10. DIVALPROEX SODIUM [Concomitant]
     Dosage: 250 MG, 3 BID
     Route: 048
  11. PROCARDIA XL [Concomitant]
     Dosage: 60 MG, ON DIALYSIS DAYSUNK
     Route: 048
  12. SOLIRIS [Suspect]
     Dosage: 600 MG, UNK
     Route: 042
     Dates: start: 20120216, end: 20120223
  13. SOLIRIS [Suspect]
     Dosage: 900 MG, UNK
     Dates: start: 20120301
  14. DAPTOMYCIN [Concomitant]
     Dosage: 4 MG/KG, QD
     Route: 042

REACTIONS (2)
  - MIGRAINE [None]
  - FATIGUE [None]
